FAERS Safety Report 12933579 (Version 8)
Quarter: 2018Q1

REPORT INFORMATION
  Report Type: Spontaneous
  Country: US (occurrence: US)
  Receive Date: 20161111
  Receipt Date: 20180306
  Transmission Date: 20180508
  Serious: Yes (Hospitalization)
  Sender: FDA-Public Use
  Company Number: US-ACTELION-A-US2016-144366

PATIENT
  Age: 61 Year
  Sex: Female
  Weight: 118.82 kg

DRUGS (6)
  1. REVATIO [Concomitant]
     Active Substance: SILDENAFIL CITRATE
  2. SILDENAFIL. [Suspect]
     Active Substance: SILDENAFIL
     Indication: PULMONARY ARTERIAL HYPERTENSION
     Dosage: 10 MG, TID
     Route: 065
     Dates: start: 20161105
  3. OPSUMIT [Suspect]
     Active Substance: MACITENTAN
     Indication: PULMONARY ARTERIAL HYPERTENSION
     Dosage: 10 MG, QD
     Route: 048
     Dates: start: 20160926
  4. SINGULAIR [Concomitant]
     Active Substance: MONTELUKAST SODIUM
     Dosage: 10 MG, QD
     Dates: start: 2009
  5. TRAMADOL. [Concomitant]
     Active Substance: TRAMADOL
     Dosage: 50 MG, Q6 HRS PRN
     Dates: start: 20170202
  6. TYLENOL ARTHRITIS PAIN [Concomitant]
     Active Substance: ACETAMINOPHEN
     Dosage: 650 MG, 6X^S/DAILY

REACTIONS (26)
  - Gastrooesophageal reflux disease [Unknown]
  - Hot flush [Unknown]
  - Cough [Recovering/Resolving]
  - Systemic lupus erythematosus [Unknown]
  - Oropharyngeal pain [Unknown]
  - Cardiac failure congestive [Unknown]
  - Fluid retention [Unknown]
  - Sneezing [Recovering/Resolving]
  - Nasal inflammation [Unknown]
  - Pulmonary hypertension [Unknown]
  - Asthma [Unknown]
  - Chest pain [Unknown]
  - Tooth fracture [Unknown]
  - Gait disturbance [Unknown]
  - Fatigue [Unknown]
  - Paraesthesia [Unknown]
  - Tooth disorder [Unknown]
  - Dyspnoea exertional [Not Recovered/Not Resolved]
  - Pleural effusion [Unknown]
  - Loss of personal independence in daily activities [Unknown]
  - Anaemia [Unknown]
  - Nasal congestion [Unknown]
  - Dyspnoea [Unknown]
  - Dyspepsia [Unknown]
  - Upper-airway cough syndrome [Unknown]
  - Dizziness [Unknown]

NARRATIVE: CASE EVENT DATE: 20161215
